FAERS Safety Report 5952929-0 (Version None)
Quarter: 2008Q4

REPORT INFORMATION
  Report Type: 
  Country: None (occurrence: None)
  Receive Date: 20081114
  Receipt Date: 20081111
  Transmission Date: 20090506
  Serious: Yes (Other)
  Sender: FDA-Public Use
  Company Number: GB-TEVA-180357ISR

PATIENT
  Age: 5 Month

DRUGS (5)
  1. ETOPOSIDE [Suspect]
  2. ANTILYMPHOCYTE IMMUNOGLOBULIN [Suspect]
     Indication: CORD BLOOD TRANSPLANT THERAPY
  3. CYCLOSPORINE [Suspect]
     Indication: CORD BLOOD TRANSPLANT THERAPY
  4. CYCLOPHOSPHAMIDE [Suspect]
     Indication: CORD BLOOD TRANSPLANT THERAPY
     Route: 042
  5. TREOSULFAN [Suspect]
     Indication: CORD BLOOD TRANSPLANT THERAPY

REACTIONS (2)
  - ACUTE GRAFT VERSUS HOST DISEASE [None]
  - HYPERTENSION [None]
